FAERS Safety Report 10441777 (Version 1)
Quarter: 2014Q3

REPORT INFORMATION
  Report Type: Spontaneous
  Country: US (occurrence: US)
  Receive Date: 20140909
  Receipt Date: 20140909
  Transmission Date: 20150326
  Serious: No
  Sender: FDA-Public Use
  Company Number: US-009507513-1408USA015456

PATIENT
  Sex: Female

DRUGS (2)
  1. ATORVASTATIN [Suspect]
     Active Substance: ATORVASTATIN
     Dosage: UNK
  2. ZETIA [Suspect]
     Active Substance: EZETIMIBE
     Dosage: 10 MG, FREQUENCY UNSPECIFIED
     Route: 048

REACTIONS (1)
  - Adverse event [Unknown]
